FAERS Safety Report 6978830-1 (Version None)
Quarter: 2010Q3

REPORT INFORMATION
  Report Type: 
  Country: None (occurrence: None)
  Receive Date: 20100913
  Receipt Date: 20100902
  Transmission Date: 20110219
  Serious: Yes (Death)
  Sender: FDA-Public Use
  Company Number: GXKR2010GB10017

PATIENT
  Age: 80 Year
  Sex: Female
  Weight: 80 kg

DRUGS (6)
  1. PREDNISOLONE (NGX) [Suspect]
     Indication: TEMPORAL ARTERITIS
     Dosage: 40 MG/DAY
     Route: 065
  2. PREDNISOLONE (NGX) [Suspect]
     Dosage: 60 MG/DAY
     Route: 065
  3. METHYLPREDNISOLONE 4MG TAB [Suspect]
     Indication: TEMPORAL ARTERITIS
     Route: 042
  4. BENDROFLUMETHIAZIDE [Concomitant]
  5. LISINOPRIL [Concomitant]
  6. GLICLAZIDE [Concomitant]

REACTIONS (11)
  - CEREBROVASCULAR ACCIDENT [None]
  - CONFUSIONAL STATE [None]
  - COORDINATION ABNORMAL [None]
  - DIZZINESS [None]
  - HEMIANOPIA [None]
  - HEMIPARESIS [None]
  - NYSTAGMUS [None]
  - SOMNOLENCE [None]
  - TEMPORAL ARTERITIS [None]
  - VISION BLURRED [None]
  - VISUAL ACUITY REDUCED [None]
